FAERS Safety Report 11133155 (Version 1)
Quarter: 2015Q2

REPORT INFORMATION
  Report Type: Spontaneous
  Country: IT (occurrence: IT)
  Receive Date: 20150522
  Receipt Date: 20150522
  Transmission Date: 20150821
  Serious: Yes (Death, Other)
  Sender: FDA-Public Use
  Company Number: IT-ASTRAZENECA-2015SE30481

PATIENT
  Age: 20318 Day
  Sex: Male

DRUGS (7)
  1. CARDIOASPIRIN [Concomitant]
     Active Substance: ASPIRIN
     Indication: CORONARY REVASCULARISATION
     Route: 048
     Dates: start: 20140922, end: 20150209
  2. TRIATEC [Concomitant]
     Active Substance: RAMIPRIL
  3. OMEPRAZEN [Concomitant]
     Active Substance: OMEPRAZOLE
  4. TOTALIP [Concomitant]
     Active Substance: ATORVASTATIN
  5. TRIATEC HCT [Concomitant]
     Active Substance: HYDROCHLOROTHIAZIDE\RAMIPRIL
     Dosage: 5 MG + 25MG , MORNING
  6. BRILIQUE [Suspect]
     Active Substance: TICAGRELOR
     Indication: CORONARY REVASCULARISATION
     Route: 048
     Dates: start: 20140922, end: 20150209
  7. SELOKEN [Concomitant]
     Active Substance: METOPROLOL

REACTIONS (5)
  - Cerebellar haemorrhage [Fatal]
  - Chest pain [Unknown]
  - Bradycardia [Unknown]
  - Asthenia [Unknown]
  - Brain herniation [Unknown]

NARRATIVE: CASE EVENT DATE: 20150210
